FAERS Safety Report 25458807 (Version 1)
Quarter: 2025Q2

REPORT INFORMATION
  Report Type: Spontaneous
  Country: GB (occurrence: GB)
  Receive Date: 20250620
  Receipt Date: 20250620
  Transmission Date: 20250717
  Serious: Yes (Other)
  Sender: TEVA
  Company Number: GB-MHRA-TPP16740348C10522410YC1749542634465

PATIENT
  Age: 76 Year
  Sex: Male
  Weight: 82 kg

DRUGS (6)
  1. AMLODIPINE [Suspect]
     Active Substance: AMLODIPINE BESYLATE
     Indication: Ill-defined disorder
     Dosage: TAKE ONE DAILY, DAILY DOSE: 5MG DAILY
     Route: 065
     Dates: start: 20250324
  2. HYDROXOCOBALAMIN [Concomitant]
     Active Substance: HYDROXOCOBALAMIN
     Indication: Ill-defined disorder
     Route: 065
     Dates: start: 20230731
  3. TAMSULOSIN HYDROCHLORIDE [Concomitant]
     Active Substance: TAMSULOSIN HYDROCHLORIDE
     Indication: Ill-defined disorder
     Dosage: TAKE ONE DAILY, DAILY DOSE : 1 DOSAGE FORM DAILY
     Route: 065
     Dates: start: 20230731
  4. OXYBUTYNIN [Concomitant]
     Active Substance: OXYBUTYNIN
     Indication: Ill-defined disorder
     Dosage: TAKE ONE TWICE DAILY, DAILY DOSE: 2 DOSAGE FORM DAILY
     Route: 065
     Dates: start: 20230731
  5. BECLOMETHASONE DIPROPIONATE [Concomitant]
     Active Substance: BECLOMETHASONE DIPROPIONATE
     Indication: Ill-defined disorder
     Dosage: TWO PUFFS TO BE INHALED TWICE DAILY, DAILY DOSE: 4 DOSAGE FORM DAILY
     Route: 065
     Dates: start: 20240711
  6. ATORVASTATIN [Concomitant]
     Active Substance: ATORVASTATIN
     Indication: Ill-defined disorder
     Dosage: ONE TABLET TO BE TAKEN DAILY TO LOWER CHOLESTER, DAILY DOSE : 1 DOSAGE FORM DAILY
     Route: 065
     Dates: start: 20230901

REACTIONS (1)
  - Joint swelling [Recovered/Resolved]
